FAERS Safety Report 6570797-3 (Version None)
Quarter: 2010Q1

REPORT INFORMATION
  Report Type: 
  Country: None (occurrence: None)
  Receive Date: 20100204
  Receipt Date: 20100201
  Transmission Date: 20100710
  Serious: Yes (Life-Threatening, Hospitalization)
  Sender: FDA-Public Use
  Company Number: NL-JNJFOC-20100111717

PATIENT
  Sex: Male
  Weight: 155 kg

DRUGS (1)
  1. NIZORAL [Suspect]
     Indication: FUNGAL SKIN INFECTION
     Route: 065

REACTIONS (1)
  - ERYSIPELAS [None]
